FAERS Safety Report 18971085 (Version 14)
Quarter: 2021Q2

REPORT INFORMATION
  Report Type: Report from Study
  Country: None (occurrence: ES)
  Receive Date: 20210304
  Receipt Date: 20210429
  Transmission Date: 20210717
  Serious: Yes (Hospitalization, Other)
  Sender: FDA-Public Use
  Company Number: ES-ABBVIE-21K-144-3796797-00

PATIENT
  Age: 76 Year
  Sex: Male

DRUGS (6)
  1. DUODOPA [Suspect]
     Active Substance: CARBIDOPA\LEVODOPA
     Indication: PARKINSON^S DISEASE
     Route: 050
     Dates: start: 20191107, end: 20210301
  2. DUODOPA [Suspect]
     Active Substance: CARBIDOPA\LEVODOPA
     Route: 050
     Dates: start: 202103, end: 202104
  3. NEUPRO [Concomitant]
     Active Substance: ROTIGOTINE
     Dosage: DOSE LOWERED
     Dates: start: 202104
  4. DUODOPA [Suspect]
     Active Substance: CARBIDOPA\LEVODOPA
     Dosage: MORNING DOSE DECREASED TO 8 ML AND CONTINUOUS DOSE DECREASED TO 3.2 ML/H
     Route: 050
     Dates: start: 202104
  5. SINEMET [Concomitant]
     Active Substance: CARBIDOPA\LEVODOPA
     Indication: PRODUCT USED FOR UNKNOWN INDICATION
     Dosage: AT NIGHT
     Dates: start: 202104
  6. NEUPRO [Concomitant]
     Active Substance: ROTIGOTINE
     Indication: PRODUCT USED FOR UNKNOWN INDICATION
     Dosage: NEUPRO PATCH
     Dates: start: 202104, end: 202104

REACTIONS (13)
  - White blood cell count decreased [Unknown]
  - Off label use [Unknown]
  - Device kink [Unknown]
  - Asthenia [Unknown]
  - Unevaluable event [Recovered/Resolved]
  - Unevaluable event [Unknown]
  - Abscess [Unknown]
  - Duodenal ulcer [Recovering/Resolving]
  - Medical device site hypertrophy [Unknown]
  - Bedridden [Unknown]
  - Muscle strength abnormal [Unknown]
  - Dyskinesia [Recovering/Resolving]
  - Hyperkinesia [Unknown]

NARRATIVE: CASE EVENT DATE: 2021
